FAERS Safety Report 18457047 (Version 1)
Quarter: 2020Q4

REPORT INFORMATION
  Report Type: Spontaneous
  Country: US (occurrence: US)
  Receive Date: 20201103
  Receipt Date: 20201103
  Transmission Date: 20210114
  Serious: Yes (Other)
  Sender: FDA-Public Use
  Company Number: US-PFIZER INC-2020417630

PATIENT
  Age: 86 Year
  Sex: Female
  Weight: 54.88 kg

DRUGS (2)
  1. PREMARIN [Suspect]
     Active Substance: ESTROGENS, CONJUGATED
     Indication: HORMONE REPLACEMENT THERAPY
     Dosage: UNK
  2. FLECTOR [Suspect]
     Active Substance: DICLOFENAC EPOLAMINE
     Indication: SPINAL FRACTURE
     Dosage: UNK

REACTIONS (5)
  - Product use in unapproved indication [Unknown]
  - Urinary tract infection [Unknown]
  - Off label use [Unknown]
  - Gastroenteritis Escherichia coli [Unknown]
  - Cataract [Unknown]
